FAERS Safety Report 10522174 (Version 1)
Quarter: 2014Q4

REPORT INFORMATION
  Report Type: Spontaneous
  Country: BR (occurrence: BR)
  Receive Date: 20141016
  Receipt Date: 20141016
  Transmission Date: 20150528
  Serious: Yes (Hospitalization, Other)
  Sender: FDA-Public Use
  Company Number: BR-ELI_LILLY_AND_COMPANY-BR201410001564

PATIENT
  Age: 94 Year
  Sex: Female
  Weight: 50 kg

DRUGS (4)
  1. CYMBALTA [Suspect]
     Active Substance: DULOXETINE HYDROCHLORIDE
     Indication: NEURALGIA
     Dosage: 60 MG, QD
     Route: 065
     Dates: start: 2009
  2. LYRICA [Concomitant]
     Active Substance: PREGABALIN
     Indication: PAIN
     Dosage: 75 MG, BID
     Route: 065
  3. CARVEDILOL. [Concomitant]
     Active Substance: CARVEDILOL
     Indication: HEART RATE INCREASED
     Dosage: 25 MG, BID
     Route: 065
  4. VASOCARD [Concomitant]
     Indication: PRODUCT USED FOR UNKNOWN INDICATION
     Dosage: 100 MG, BID
     Route: 065

REACTIONS (8)
  - Cholelithiasis migration [Unknown]
  - Pneumonia aspiration [Recovered/Resolved]
  - Mood altered [Recovered/Resolved]
  - Fluid retention [Recovered/Resolved]
  - Pancreatitis [Recovered/Resolved]
  - Wrong technique in drug usage process [Unknown]
  - Dementia Alzheimer^s type [Not Recovered/Not Resolved]
  - Aggression [Recovered/Resolved]

NARRATIVE: CASE EVENT DATE: 201401
